FAERS Safety Report 10550192 (Version 5)
Quarter: 2015Q1

REPORT INFORMATION
  Report Type: Report from Study
  Country: US (occurrence: US)
  Receive Date: 20141028
  Receipt Date: 20150220
  Transmission Date: 20150720
  Serious: Yes (Hospitalization, Other)
  Sender: FDA-Public Use
  Company Number: US-EXELIXIS-CABO-14004833

PATIENT
  Sex: Male

DRUGS (11)
  1. BEVACIZUMAB [Concomitant]
     Active Substance: BEVACIZUMAB
  2. OMEPRAZOLE. [Concomitant]
     Active Substance: OMEPRAZOLE
  3. MAGNESIUM [Concomitant]
     Active Substance: MAGNESIUM
  4. MULTIVITAMINS [Concomitant]
     Active Substance: VITAMINS
  5. OMEGA-3 FATTY ACIDS [Concomitant]
     Active Substance: OMEGA-3 FATTY ACIDS
  6. MARIJUANA [Concomitant]
     Active Substance: CANNABIS SATIVA SUBSP. INDICA TOP
  7. COQ 10 [Concomitant]
     Active Substance: UBIDECARENONE
  8. SIMVASTATIN. [Concomitant]
     Active Substance: SIMVASTATIN
  9. LEVOTHYROXINE SODIUM. [Concomitant]
     Active Substance: LEVOTHYROXINE SODIUM
  10. POTASSIUM [Concomitant]
     Active Substance: POTASSIUM
  11. CABOZANTINIB [Suspect]
     Active Substance: CABOZANTINIB
     Indication: THYROID CANCER
     Dosage: 140 MG, QD
     Route: 048
     Dates: start: 20140916, end: 20141009

REACTIONS (15)
  - Transient ischaemic attack [Recovering/Resolving]
  - Oropharyngeal pain [Unknown]
  - Glossodynia [Unknown]
  - Tenderness [Unknown]
  - Cerebrovascular accident [Unknown]
  - Pain of skin [Unknown]
  - Erythema [Unknown]
  - Gastrooesophageal reflux disease [Unknown]
  - Muscle spasms [Unknown]
  - Faeces hard [Unknown]
  - Pain in extremity [Unknown]
  - Dyspnoea [Unknown]
  - Fatigue [Unknown]
  - Dysphonia [Unknown]
  - Stomatitis [Unknown]

NARRATIVE: CASE EVENT DATE: 2014
